FAERS Safety Report 8613334-1 (Version None)
Quarter: 2012Q3

REPORT INFORMATION
  Report Type: 
  Country: None (occurrence: None)
  Receive Date: 20120822
  Receipt Date: 20120806
  Transmission Date: 20120928
  Serious: Yes (Hospitalization, Other)
  Sender: FDA-Public Use
  Company Number: US-009507513-1202USA00873

PATIENT

DRUGS (2)
  1. FOSAMAX [Suspect]
     Indication: OSTEOPOROSIS
     Dosage: 70 MG, QW
     Route: 048
     Dates: start: 19950101, end: 20090803
  2. NEXIUM [Concomitant]
     Dosage: UNK
     Dates: start: 19920101

REACTIONS (2)
  - FEMUR FRACTURE [None]
  - FOOT FRACTURE [None]
